FAERS Safety Report 19548986 (Version 1)
Quarter: 2021Q3

REPORT INFORMATION
  Report Type: Spontaneous
  Country: US (occurrence: US)
  Receive Date: 20210714
  Receipt Date: 20210714
  Transmission Date: 20211014
  Serious: No
  Sender: FDA-Public Use
  Company Number: US-ASTRAZENECA-2021A573130

PATIENT
  Sex: Female
  Weight: 68 kg

DRUGS (1)
  1. PULMICORT FLEXHALER [Suspect]
     Active Substance: BUDESONIDE
     Indication: CHRONIC OBSTRUCTIVE PULMONARY DISEASE
     Dosage: 1 PUFF TWICE DAILY
     Route: 055
     Dates: start: 202106

REACTIONS (6)
  - Product use issue [Unknown]
  - Ill-defined disorder [Unknown]
  - Condition aggravated [Unknown]
  - Bronchospasm [Unknown]
  - Drug ineffective [Unknown]
  - Product dose omission issue [Unknown]
